FAERS Safety Report 13256926 (Version 1)
Quarter: 2017Q1

REPORT INFORMATION
  Report Type: Spontaneous
  Country: US (occurrence: US)
  Receive Date: 20170221
  Receipt Date: 20170221
  Transmission Date: 20170428
  Serious: No
  Sender: FDA-Public Use
  Company Number: US-IGSA-GTI004938

PATIENT
  Age: 13 Day
  Sex: Female
  Weight: 3 kg

DRUGS (8)
  1. PHENOBARBITAL. [Concomitant]
     Active Substance: PHENOBARBITAL
     Dates: start: 20161207
  2. HEPARIN [Concomitant]
     Active Substance: HEPARIN SODIUM
     Dates: start: 20161213, end: 20161213
  3. FENTANYL /00174602/ [Concomitant]
     Active Substance: FENTANYL
     Dates: start: 20161204
  4. THROMBATE III [Suspect]
     Active Substance: ANTITHROMBIN III HUMAN
     Indication: ANTITHROMBIN III DEFICIENCY
     Route: 042
     Dates: start: 20161204
  5. HEPARIN [Concomitant]
     Active Substance: HEPARIN SODIUM
     Dates: start: 20161209, end: 20161209
  6. HEPARIN [Concomitant]
     Active Substance: HEPARIN SODIUM
     Dates: start: 20161210, end: 20161210
  7. HEPARIN [Concomitant]
     Active Substance: HEPARIN SODIUM
     Dates: start: 201612
  8. HEPARIN [Concomitant]
     Active Substance: HEPARIN SODIUM
     Dates: start: 20161212, end: 20161212

REACTIONS (2)
  - Drug interaction [Not Recovered/Not Resolved]
  - Anticoagulation drug level decreased [Not Recovered/Not Resolved]

NARRATIVE: CASE EVENT DATE: 20161207
